FAERS Safety Report 7737726-8 (Version None)
Quarter: 2011Q3

REPORT INFORMATION
  Report Type: 
  Country: None (occurrence: None)
  Receive Date: 20110908
  Receipt Date: 20110902
  Transmission Date: 20111222
  Serious: Yes (Death, Life-Threatening, Hospitalization, Disabling, Other)
  Sender: FDA-Public Use
  Company Number: AR-ELI_LILLY_AND_COMPANY-AR201107002777

PATIENT
  Sex: Male

DRUGS (9)
  1. ENALAPRIL MALEATE [Concomitant]
     Dosage: UNK, UNKNOWN
     Route: 065
  2. CARVEDILOL [Concomitant]
     Dosage: UNK, UNKNOWN
     Route: 065
  3. FUROSEMIDE [Concomitant]
     Indication: CARDIAC FAILURE
     Dosage: UNK, UNKNOWN
     Route: 065
  4. INSULIN NPH                        /01223208/ [Concomitant]
     Dosage: UNK UNK, UNKNOWN
     Route: 065
     Dates: start: 20051215
  5. SPIRONOLACTONE [Concomitant]
     Dosage: UNK, UNKNOWN
     Route: 065
  6. LEVOTHYROXINE SODIUM [Concomitant]
     Dosage: UNK, UNKNOWN
     Route: 065
  7. DIGOXIN [Concomitant]
     Dosage: UNK, UNKNOWN
     Route: 065
  8. PRASUGREL HYDROCHLORIDE [Suspect]
     Indication: INTERMITTENT CLAUDICATION
     Dosage: UNK UNK, UNKNOWN
     Route: 048
     Dates: start: 20110518
  9. ROSUVASTATIN [Concomitant]
     Dosage: UNK, UNKNOWN
     Route: 065

REACTIONS (7)
  - RECTAL HAEMORRHAGE [None]
  - SEPTIC SHOCK [None]
  - ANAEMIA [None]
  - CARDIO-RESPIRATORY ARREST [None]
  - MULTI-ORGAN FAILURE [None]
  - CARDIAC FAILURE [None]
  - OFF LABEL USE [None]
